FAERS Safety Report 16415339 (Version 4)
Quarter: 2019Q3

REPORT INFORMATION
  Report Type: Spontaneous
  Country: TW (occurrence: TW)
  Receive Date: 20190611
  Receipt Date: 20190709
  Transmission Date: 20191004
  Serious: Yes (Hospitalization)
  Sender: FDA-Public Use
  Company Number: TW-ABBVIE-19K-153-2811130-00

PATIENT
  Age: 68 Year
  Sex: Female
  Weight: 60 kg

DRUGS (7)
  1. PREDNISOLONE. [Concomitant]
     Active Substance: PREDNISOLONE
     Indication: PRODUCT USED FOR UNKNOWN INDICATION
  2. HUMIRA [Suspect]
     Active Substance: ADALIMUMAB
     Indication: RHEUMATOID ARTHRITIS
     Route: 058
     Dates: start: 20171216, end: 20180502
  3. AZATHIOPRIN [Concomitant]
     Active Substance: AZATHIOPRINE
     Indication: PRODUCT USED FOR UNKNOWN INDICATION
  4. CORTISONE [Concomitant]
     Active Substance: CORTISONE
     Indication: PNEUMOCYSTIS JIROVECII PNEUMONIA
  5. PREDNISONE. [Concomitant]
     Active Substance: PREDNISONE
     Indication: PRODUCT USED FOR UNKNOWN INDICATION
     Dates: start: 20170607, end: 20190502
  6. VORICONAZOLE. [Concomitant]
     Active Substance: VORICONAZOLE
     Indication: PNEUMOCYSTIS JIROVECII PNEUMONIA
  7. FEBUXOSTAT. [Concomitant]
     Active Substance: FEBUXOSTAT
     Indication: RHEUMATOID ARTHRITIS

REACTIONS (8)
  - Intervertebral disc degeneration [Unknown]
  - Diaphragmatic disorder [Unknown]
  - Aortic arteriosclerosis [Unknown]
  - Pneumonia [Unknown]
  - Acute kidney injury [Recovering/Resolving]
  - Urinary tract infection [Recovered/Resolved]
  - Feeling cold [Unknown]
  - Aortic disorder [Unknown]

NARRATIVE: CASE EVENT DATE: 20180427
